FAERS Safety Report 11598354 (Version 4)
Quarter: 2016Q1

REPORT INFORMATION
  Report Type: Report from Study
  Country: BR (occurrence: BR)
  Receive Date: 20151006
  Receipt Date: 20160215
  Transmission Date: 20160525
  Serious: Yes (Hospitalization, Other)
  Sender: FDA-Public Use
  Company Number: PHHY2015BR069680

PATIENT
  Sex: Male
  Weight: 60 kg

DRUGS (3)
  1. EXJADE [Suspect]
     Active Substance: DEFERASIROX
     Indication: IRON OVERLOAD
     Dosage: 2 DF (15 MG/KG), QD (IN THE MORNING)
     Route: 048
  2. INSULIN [Concomitant]
     Active Substance: INSULIN NOS
     Indication: DIABETES MELLITUS
     Dosage: 10 U, QD
     Route: 058
  3. NPH INSULIN [Concomitant]
     Active Substance: INSULIN BEEF
     Indication: DIABETES MELLITUS
     Dosage: 20 U, QD
     Route: 058

REACTIONS (6)
  - Speech disorder [Recovered/Resolved]
  - Diabetes mellitus inadequate control [Unknown]
  - Kidney infection [Recovered/Resolved]
  - Gait disturbance [Recovered/Resolved]
  - Urine analysis abnormal [Recovered/Resolved]
  - Coma [Recovered/Resolved]
